FAERS Safety Report 4374796-1 (Version None)
Quarter: 2004Q2

REPORT INFORMATION
  Report Type: 
  Country: None (occurrence: None)
  Receive Date: 20040604
  Receipt Date: 20040531
  Transmission Date: 20050107
  Serious: Yes (Other)
  Sender: FDA-Public Use
  Company Number: 2004215995IN

PATIENT
  Sex: Male

DRUGS (3)
  1. FRAGMIN [Suspect]
     Indication: ANGINA UNSTABLE
     Dosage: 5000 U, BID, SUBCUTANEOUS
     Route: 058
  2. ASPIRIN [Concomitant]
  3. CLOPIDOGREL (CLOPIDOGREL) [Concomitant]

REACTIONS (2)
  - HAEMATURIA [None]
  - HAEMOPTYSIS [None]
